FAERS Safety Report 8106267-0 (Version None)
Quarter: 2012Q1

REPORT INFORMATION
  Report Type: 
  Country: None (occurrence: None)
  Receive Date: 20120130
  Receipt Date: 20120118
  Transmission Date: 20120608
  Serious: Yes (Other)
  Sender: FDA-Public Use
  Company Number: AUR-APL-2011-05445

PATIENT
  Sex: Female

DRUGS (1)
  1. LOSARTAN POTASSIUM AND HYDROCHLOROTHIAZIDE [Suspect]
     Indication: HYPERTENSION
     Dosage: 50/12.5 MG (1 DOSAGE FORMS, 1 IN 1 D), ORAL
     Route: 048

REACTIONS (9)
  - HEADACHE [None]
  - MALAISE [None]
  - BLOOD PRESSURE FLUCTUATION [None]
  - PALPITATIONS [None]
  - PRODUCT QUALITY ISSUE [None]
  - DRUG INEFFECTIVE [None]
  - HYPERHIDROSIS [None]
  - BLOOD PRESSURE INCREASED [None]
  - ASTHENIA [None]
